FAERS Safety Report 24388897 (Version 1)
Quarter: 2024Q4

REPORT INFORMATION
  Report Type: Spontaneous
  Country: KR (occurrence: KR)
  Receive Date: 20241002
  Receipt Date: 20241002
  Transmission Date: 20250115
  Serious: Yes (Hospitalization, Other)
  Sender: BRISTOL MYERS SQUIBB
  Company Number: KR-BRISTOL-MYERS SQUIBB COMPANY-2024-154340

PATIENT
  Age: 71 Year
  Sex: Male
  Weight: 57.6 kg

DRUGS (15)
  1. BARACLUDE [Suspect]
     Active Substance: ENTECAVIR
     Indication: Product used for unknown indication
     Dates: start: 20120120
  2. AMPICILLIN SODIUM [Concomitant]
     Active Substance: AMPICILLIN SODIUM
     Indication: Product used for unknown indication
     Dates: start: 20210129, end: 20210201
  3. PIPERACILLIN SODIUM\TAZOBACTAM SODIUM [Concomitant]
     Active Substance: PIPERACILLIN SODIUM\TAZOBACTAM SODIUM
     Indication: Product used for unknown indication
     Dates: start: 20210121, end: 20210129
  4. PANTOPRAZOLE SODIUM [Concomitant]
     Active Substance: PANTOPRAZOLE SODIUM
     Indication: Product used for unknown indication
     Dates: start: 20210117, end: 20210205
  5. RAMOSETRON HYDROCHLORIDE [Concomitant]
     Active Substance: RAMOSETRON HYDROCHLORIDE
     Indication: Product used for unknown indication
     Dates: start: 20210118, end: 20210118
  6. METRONIDAZOLE [Concomitant]
     Active Substance: METRONIDAZOLE
     Indication: Product used for unknown indication
     Dates: start: 20210116, end: 20210121
  7. CEFTRIAXONE SODIUM [Concomitant]
     Active Substance: CEFTRIAXONE SODIUM
     Indication: Product used for unknown indication
     Dates: start: 20210116, end: 20210121
  8. TRAMADOL HYDROCHLORIDE [Concomitant]
     Active Substance: TRAMADOL HYDROCHLORIDE
     Indication: Product used for unknown indication
     Dates: start: 20210116, end: 20210117
  9. OMEPRAZOLE [Concomitant]
     Active Substance: OMEPRAZOLE
     Indication: Product used for unknown indication
     Dates: start: 20210217
  10. MOSAPRIDE CITRATE DIHYDRATE [Concomitant]
     Active Substance: MOSAPRIDE CITRATE DIHYDRATE
     Indication: Product used for unknown indication
     Dates: start: 20210217
  11. LOPERAMIDE HYDROCHLORIDE [Concomitant]
     Active Substance: LOPERAMIDE HYDROCHLORIDE
     Indication: Product used for unknown indication
     Dates: start: 20200514
  12. AMLODIPINE BESYLATE [Concomitant]
     Active Substance: AMLODIPINE BESYLATE
     Indication: Product used for unknown indication
  13. CIPROFLOXACIN [Concomitant]
     Active Substance: CIPROFLOXACIN
     Indication: Product used for unknown indication
     Dates: start: 20210129, end: 20210201
  14. SULBACTAM SODIUM [Concomitant]
     Active Substance: SULBACTAM SODIUM
     Indication: Product used for unknown indication
     Dates: start: 20210129, end: 20210201
  15. SUFENTANIL CITRATE [Concomitant]
     Active Substance: SUFENTANIL CITRATE
     Indication: Product used for unknown indication
     Dates: start: 20210117, end: 20210117

REACTIONS (1)
  - Large intestine perforation [Recovered/Resolved]

NARRATIVE: CASE EVENT DATE: 20210101
